FAERS Safety Report 14875323 (Version 1)
Quarter: 2018Q2

REPORT INFORMATION
  Report Type: Spontaneous
  Country: US (occurrence: US)
  Receive Date: 20180510
  Receipt Date: 20180510
  Transmission Date: 20180711
  Serious: No
  Sender: FDA-Public Use
  Company Number: US-BAYER-2018-087916

PATIENT

DRUGS (2)
  1. MIRALAX [Suspect]
     Active Substance: POLYETHYLENE GLYCOL 3350
     Dosage: UNK
     Route: 065
  2. SENACOT [Concomitant]
     Indication: LAXATIVE SUPPORTIVE CARE
     Dosage: UNK

REACTIONS (2)
  - Product prescribing issue [Unknown]
  - Product use issue [Unknown]
